FAERS Safety Report 5626268-1 (Version None)
Quarter: 2008Q1

REPORT INFORMATION
  Report Type: 
  Country: None (occurrence: None)
  Receive Date: 20080207
  Receipt Date: 20080130
  Transmission Date: 20080703
  Serious: Yes (Other)
  Sender: FDA-Public Use
  Company Number: 2008002755

PATIENT
  Age: 35 Year
  Sex: Female

DRUGS (2)
  1. SINUTAB COMFORT CARE VAPOUR PLUG (MENTHOL, CAMPHOR, EUCALYPTUS OIL) [Suspect]
     Indication: SINUS HEADACHE
     Dosage: SUCKED ON, UNSPECIFIED , ORAL
     Route: 048
  2. VICKS COUGH SYRUP (EPHEDRINE, GUAIFENESIN, SODIUM CITRATE) [Suspect]
     Dosage: UNSPECIFIED,

REACTIONS (3)
  - CHEST DISCOMFORT [None]
  - DRUG INEFFECTIVE [None]
  - INCORRECT ROUTE OF DRUG ADMINISTRATION [None]
